FAERS Safety Report 20494666 (Version 2)
Quarter: 2022Q1

REPORT INFORMATION
  Report Type: Spontaneous
  Country: JP (occurrence: JP)
  Receive Date: 20220221
  Receipt Date: 20220228
  Transmission Date: 20220423
  Serious: Yes (Life-Threatening, Hospitalization, Other)
  Sender: FDA-Public Use
  Company Number: JP-Accord-254160

PATIENT
  Age: 64 Year
  Sex: Male

DRUGS (2)
  1. CAPECITABINE [Suspect]
     Active Substance: CAPECITABINE
     Indication: Rectal adenocarcinoma
     Dosage: (ORAL FP, 2,000 MG/M2 / DAY, DAYS 1 TO 14), EVERY 3 WEEKS.
     Route: 048
  2. OXALIPLATIN [Suspect]
     Active Substance: OXALIPLATIN
     Indication: Rectal adenocarcinoma
     Dosage: (130 MG/M2 ON DAY 1), EVERY 3 WEEKS.

REACTIONS (16)
  - Decreased appetite [Unknown]
  - Pyrexia [Unknown]
  - Diarrhoea [Unknown]
  - Febrile neutropenia [Unknown]
  - Renal impairment [Recovered/Resolved]
  - Haematochezia [Recovered/Resolved]
  - Stomatitis [Unknown]
  - Inflammatory marker increased [Unknown]
  - Anaemia [Unknown]
  - Platelet count decreased [Unknown]
  - Gastrointestinal mucosal disorder [Unknown]
  - Oesophageal stenosis [Unknown]
  - Shock haemorrhagic [Recovering/Resolving]
  - Gastrointestinal ulcer [Recovering/Resolving]
  - Gastrointestinal haemorrhage [Recovering/Resolving]
  - Large intestinal stenosis [Recovering/Resolving]
